FAERS Safety Report 23604653 (Version 1)
Quarter: 2024Q1

REPORT INFORMATION
  Report Type: Spontaneous
  Country: US (occurrence: US)
  Receive Date: 20240307
  Receipt Date: 20240307
  Transmission Date: 20240410
  Serious: Yes (Other)
  Sender: FDA-Public Use
  Company Number: US-BRISTOL-MYERS SQUIBB COMPANY-2024-035887

PATIENT
  Age: 79 Year
  Sex: Female
  Weight: 78.47 kg

DRUGS (1)
  1. REVLIMID [Suspect]
     Active Substance: LENALIDOMIDE
     Indication: Plasma cell myeloma
     Dosage: 3WEEKS ON, 1 WEEK OFF
     Route: 048

REACTIONS (4)
  - Constipation [Recovering/Resolving]
  - Skin disorder [Recovering/Resolving]
  - Blood potassium decreased [Recovering/Resolving]
  - Immunodeficiency [Recovering/Resolving]
